FAERS Safety Report 6892602-8 (Version None)
Quarter: 2010Q3

REPORT INFORMATION
  Report Type: 
  Country: None (occurrence: None)
  Receive Date: 20100731
  Receipt Date: 20080804
  Transmission Date: 20110219
  Serious: No
  Sender: FDA-Public Use
  Company Number: US-PFIZER INC-2008065535

PATIENT
  Sex: Female
  Weight: 63.6 kg

DRUGS (6)
  1. NORVASC [Suspect]
     Indication: HYPERTENSION
     Route: 048
     Dates: start: 20080729
  2. ALL OTHER THERAPEUTIC PRODUCTS [Concomitant]
  3. VITAMIN B6 [Concomitant]
     Dates: end: 20080728
  4. FISH OIL [Concomitant]
     Dates: end: 20080728
  5. PRINIVIL [Concomitant]
     Dates: end: 20080728
  6. METOPROLOL TARTRATE [Concomitant]

REACTIONS (3)
  - PALPITATIONS [None]
  - RASH [None]
  - TACHYCARDIA [None]
